FAERS Safety Report 5961341-X (Version None)
Quarter: 2008Q4

REPORT INFORMATION
  Report Type: 
  Country: None (occurrence: None)
  Receive Date: 20081114
  Receipt Date: 20080909
  Transmission Date: 20090506
  Serious: No
  Sender: FDA-Public Use
  Company Number: WAES 0809USA01429

PATIENT
  Age: 54 Year
  Sex: Male

DRUGS (2)
  1. ISENTRESS [Suspect]
     Indication: HIV INFECTION
     Dosage: 400 MG/BID/PO
     Route: 048
     Dates: start: 20080814, end: 20080902
  2. TRUVADA [Concomitant]

REACTIONS (1)
  - DEPRESSION [None]
